FAERS Safety Report 10408432 (Version 1)
Quarter: 2014Q3

REPORT INFORMATION
  Report Type: Spontaneous
  Country: US (occurrence: None)
  Receive Date: 20140825
  Receipt Date: 20140825
  Transmission Date: 20150326
  Serious: Yes (Other)
  Sender: FDA-Public Use
  Company Number: None

PATIENT
  Age: 91 Year
  Sex: Female
  Weight: 56.7 kg

DRUGS (2)
  1. FEIBA [Suspect]
     Active Substance: ANTI-INHIBITOR COAGULANT COMPLEX
     Indication: SUBDURAL HAEMATOMA
     Dosage: 6032 UNITS ONCE INTRAVENOUS
     Route: 042
     Dates: start: 20140822, end: 20140822
  2. PLASMA [Concomitant]
     Active Substance: HUMAN PLASMA

REACTIONS (1)
  - Rash erythematous [None]

NARRATIVE: CASE EVENT DATE: 20140822
